FAERS Safety Report 15336385 (Version 7)
Quarter: 2020Q2

REPORT INFORMATION
  Report Type: Spontaneous
  Country: US (occurrence: US)
  Receive Date: 20180830
  Receipt Date: 20200429
  Transmission Date: 20200713
  Serious: Yes (Life-Threatening, Hospitalization, Other)
  Sender: FDA-Public Use
  Company Number: US-ACTELION-A-US2018-177728

PATIENT
  Age: 49 Year
  Sex: Female

DRUGS (7)
  1. COZAAR [Concomitant]
     Active Substance: LOSARTAN POTASSIUM
  2. ISOSORBIDE. [Concomitant]
     Active Substance: ISOSORBIDE
  3. TRACLEER [Suspect]
     Active Substance: BOSENTAN
     Indication: PULMONARY ARTERIAL HYPERTENSION
     Dosage: 62.5 MG, UNK
     Route: 048
  4. ELIQUIS [Concomitant]
     Active Substance: APIXABAN
  5. CARVEDILOL. [Concomitant]
     Active Substance: CARVEDILOL
  6. NEXIUM [Concomitant]
     Active Substance: ESOMEPRAZOLE MAGNESIUM
  7. IMURAN [Suspect]
     Active Substance: AZATHIOPRINE
     Indication: PRODUCT USED FOR UNKNOWN INDICATION
     Route: 065

REACTIONS (10)
  - Toxicity to various agents [Recovered/Resolved]
  - Haemoglobin decreased [Recovering/Resolving]
  - Product dose omission [Unknown]
  - Atrial flutter [Recovering/Resolving]
  - Immunosuppression [Recovered/Resolved]
  - Renal failure [Recovering/Resolving]
  - Disease progression [Not Recovered/Not Resolved]
  - Renal transplant [Unknown]
  - Dyspnoea [Unknown]
  - Renal disorder [Not Recovered/Not Resolved]

NARRATIVE: CASE EVENT DATE: 20191226
